FAERS Safety Report 6259901-4 (Version None)
Quarter: 2009Q3

REPORT INFORMATION
  Report Type: 
  Country: None (occurrence: None)
  Receive Date: 20090708
  Receipt Date: 20090623
  Transmission Date: 20100115
  Serious: Yes (Hospitalization)
  Sender: FDA-Public Use
  Company Number: PHHO2006US02946

PATIENT
  Sex: Female
  Weight: 80.9 kg

DRUGS (14)
  1. ZOLEDRONIC ACID [Suspect]
     Indication: OSTEOPOROSIS POSTMENOPAUSAL
     Dosage: 5 MG, ONCE YEARLY
     Route: 042
     Dates: start: 20060118
  2. CALCIUM [Concomitant]
     Indication: OSTEOPOROSIS POSTMENOPAUSAL
  3. VITAMIN D [Concomitant]
     Indication: OSTEOPOROSIS POSTMENOPAUSAL
  4. SYNTHROID [Concomitant]
     Dosage: UNK, UNK
  5. TOPROL-XL [Concomitant]
     Dosage: UNK, UNK
  6. EVISTA [Concomitant]
     Dosage: UNK, UNK
  7. MULTI-VITAMINS [Concomitant]
     Dosage: 1 TAB, DAILY
  8. DIOVAN [Concomitant]
     Dosage: 160 UNK, QD
  9. VYTORIN [Concomitant]
     Dosage: 10-20 MG, DAILY
  10. IBUPROFEN [Concomitant]
  11. VITAMIN E [Concomitant]
  12. LOVAZA [Concomitant]
  13. COUMADIN [Concomitant]
  14. ZINC [Concomitant]

REACTIONS (10)
  - ABDOMINAL PAIN [None]
  - ABDOMINAL PAIN UPPER [None]
  - AORTIC ARTERIOSCLEROSIS [None]
  - ATRIAL FIBRILLATION [None]
  - CHOLECYSTECTOMY [None]
  - CHOLECYSTITIS [None]
  - CHOLELITHIASIS [None]
  - MYALGIA [None]
  - PAIN [None]
  - PAIN IN EXTREMITY [None]
